FAERS Safety Report 6598882-0 (Version None)
Quarter: 2010Q1

REPORT INFORMATION
  Report Type: 
  Country: None (occurrence: None)
  Receive Date: 20100224
  Receipt Date: 20090115
  Transmission Date: 20100710
  Serious: No
  Sender: FDA-Public Use
  Company Number: US-BRISTOL-MYERS SQUIBB COMPANY-14473516

PATIENT
  Age: 57 Year
  Sex: Male

DRUGS (2)
  1. GLUCOPHAGE [Suspect]
  2. ACTOS [Suspect]

REACTIONS (3)
  - BLOOD GLUCOSE INCREASED [None]
  - NERVE INJURY [None]
  - RENAL DISORDER [None]
